FAERS Safety Report 8356440 (Version 3)
Quarter: 2016Q2

REPORT INFORMATION
  Report Type: Spontaneous
  Country: DE (occurrence: DE)
  Receive Date: 20120126
  Receipt Date: 20160525
  Transmission Date: 20160815
  Serious: Yes (Congenital Anomaly, Other)
  Sender: FDA-Public Use
  Company Number: DE-TEVA-319186USA

PATIENT

DRUGS (1)
  1. ZINC ACETATE 25 MG + 50 MG CAPSULES [Suspect]
     Active Substance: ZINC ACETATE
     Indication: HEPATO-LENTICULAR DEGENERATION
     Route: 064

REACTIONS (1)
  - Glucose-6-phosphate dehydrogenase deficiency [Unknown]
